FAERS Safety Report 9557187 (Version 1)
Quarter: 2013Q3

REPORT INFORMATION
  Report Type: Spontaneous
  Country: US (occurrence: None)
  Receive Date: 20130726
  Receipt Date: 20130726
  Transmission Date: 20140515
  Serious: Yes (Hospitalization)
  Sender: FDA-Public Use
  Company Number: UTC-024288

PATIENT
  Age: 61 Year
  Sex: Female
  Weight: 111.8 kg

DRUGS (2)
  1. REMODULIN (1 MILLIGRAM/ MILLILITERS, INJECTION FOR INFUSION) (TREPROSTINIL SODIUM) [Suspect]
     Indication: PULMONARY HYPERTENSION
     Dosage: 0.0605 UG/KG, 1 IN 1 MIN
     Route: 058
     Dates: start: 20110510
  2. REVATIO [Concomitant]

REACTIONS (1)
  - Infusion site cellulitis [None]
